FAERS Safety Report 5896727-5 (Version None)
Quarter: 2008Q3

REPORT INFORMATION
  Report Type: 
  Country: None (occurrence: None)
  Receive Date: 20080924
  Receipt Date: 20080711
  Transmission Date: 20090109
  Serious: Yes (Other)
  Sender: FDA-Public Use
  Company Number: US-ASTRAZENECA-2007UW28982

PATIENT
  Age: 454 Month
  Sex: Female
  Weight: 81.6 kg

DRUGS (8)
  1. SEROQUEL [Suspect]
     Indication: MANIA
     Route: 048
     Dates: start: 20060518, end: 20070501
  2. SEROQUEL [Suspect]
     Indication: SLEEP DISORDER
     Route: 048
     Dates: start: 20060518, end: 20070501
  3. SEROQUEL [Suspect]
     Route: 048
     Dates: start: 20060518, end: 20070501
  4. SEROQUEL [Suspect]
     Route: 048
     Dates: start: 20060518, end: 20070501
  5. WELLBUTRIN [Concomitant]
     Dates: start: 20030214, end: 20040727
  6. PAXIL [Concomitant]
     Dates: start: 20040409, end: 20041022
  7. PAXIL [Concomitant]
  8. FASTIN [Concomitant]
     Dates: start: 20040601

REACTIONS (4)
  - BIPOLAR DISORDER [None]
  - DEPRESSION [None]
  - DIABETES MELLITUS [None]
  - SUICIDE ATTEMPT [None]
